FAERS Safety Report 8458947-5 (Version None)
Quarter: 2012Q2

REPORT INFORMATION
  Report Type: 
  Country: None (occurrence: None)
  Receive Date: 20120622
  Receipt Date: 20120615
  Transmission Date: 20120825
  Serious: Yes (Other)
  Sender: FDA-Public Use
  Company Number: CA-ROCHE-1057882

PATIENT
  Sex: Female

DRUGS (5)
  1. VENTOLIN [Concomitant]
  2. XOLAIR [Suspect]
     Route: 058
     Dates: start: 20120319
  3. NASONEX [Concomitant]
  4. ADVAIR DISKUS 100/50 [Concomitant]
  5. XOLAIR [Suspect]
     Indication: ASTHMA
     Route: 058
     Dates: start: 20120113

REACTIONS (8)
  - INJECTION SITE PAIN [None]
  - ASTHMA [None]
  - ABDOMINAL PAIN LOWER [None]
  - PROCTALGIA [None]
  - EAR PAIN [None]
  - HYPERSENSITIVITY [None]
  - RECTAL HAEMORRHAGE [None]
  - DRUG INEFFECTIVE [None]
